FAERS Safety Report 5463903-5 (Version None)
Quarter: 2007Q3

REPORT INFORMATION
  Report Type: 
  Country: None (occurrence: None)
  Receive Date: 20070814
  Receipt Date: 20070227
  Transmission Date: 20080115
  Serious: Yes (Hospitalization)
  Sender: FDA-Public Use
  Company Number: MEDI-0005472

PATIENT
  Age: 7 Month
  Sex: Male

DRUGS (3)
  1. SYNAGIS [Suspect]
     Dates: start: 20060701, end: 20070124
  2. SYNAGIS [Suspect]
     Dates: start: 20060701
  3. SYNAGIS [Suspect]
     Dates: start: 20061216

REACTIONS (1)
  - RESPIRATORY SYNCYTIAL VIRUS INFECTION [None]
